FAERS Safety Report 9778200 (Version 1)
Quarter: 2013Q4

REPORT INFORMATION
  Report Type: Spontaneous
  Country: US (occurrence: US)
  Receive Date: 20131223
  Receipt Date: 20131223
  Transmission Date: 20140711
  Serious: Yes (Hospitalization)
  Sender: FDA-Public Use
  Company Number: US-CELGENEUS-163-21880-13122144

PATIENT
  Age: 54 Year
  Sex: Female
  Weight: 63.11 kg

DRUGS (3)
  1. REVLIMID [Suspect]
     Indication: PLASMA CELL MYELOMA
     Dosage: 25 MILLIGRAM
     Route: 048
     Dates: start: 201105
  2. REVLIMID [Suspect]
     Dosage: 10 MILLIGRAM
     Route: 048
     Dates: start: 201202, end: 201306
  3. PAIN MEDICATION [Concomitant]
     Indication: PAIN
     Route: 065

REACTIONS (3)
  - Oral disorder [Recovered/Resolved]
  - Pneumonia [Recovered/Resolved]
  - Plasma cell myeloma [Not Recovered/Not Resolved]
